FAERS Safety Report 16073690 (Version 2)
Quarter: 2019Q2

REPORT INFORMATION
  Report Type: Spontaneous
  Country: GB (occurrence: GB)
  Receive Date: 20190314
  Receipt Date: 20190612
  Transmission Date: 20190711
  Serious: Yes (Hospitalization)
  Sender: FDA-Public Use
  Company Number: GB-MYLANLABS-2019M1023604

PATIENT
  Sex: Male

DRUGS (1)
  1. CLOZARIL [Suspect]
     Active Substance: CLOZAPINE
     Indication: SCHIZOPHRENIA
     Dosage: UNK
     Route: 048
     Dates: start: 20161007

REACTIONS (4)
  - Product dose omission [Unknown]
  - Schizophrenia [Unknown]
  - Hyperphagia [Unknown]
  - Vomiting [Unknown]

NARRATIVE: CASE EVENT DATE: 2019
